FAERS Safety Report 21218986 (Version 9)
Quarter: 2023Q4

REPORT INFORMATION
  Report Type: Report from Study
  Country: US (occurrence: US)
  Receive Date: 20220816
  Receipt Date: 20231124
  Transmission Date: 20240110
  Serious: Yes (Hospitalization, Other)
  Sender: FDA-Public Use
  Company Number: US-TAKEDA-2022TUS039701

PATIENT
  Sex: Female
  Weight: 86 kg

DRUGS (27)
  1. LANADELUMAB [Suspect]
     Active Substance: LANADELUMAB
     Indication: Immune system disorder
     Dosage: 300 MILLIGRAM, Q2WEEKS
     Route: 058
     Dates: start: 20220528
  2. LANADELUMAB [Suspect]
     Active Substance: LANADELUMAB
     Dosage: 300 MILLIGRAM
     Route: 058
  3. LANADELUMAB [Suspect]
     Active Substance: LANADELUMAB
     Dosage: 300 MILLIGRAM, Q2WEEKS
     Route: 058
  4. IBUPROFEN [Suspect]
     Active Substance: IBUPROFEN
     Indication: Product used for unknown indication
     Dosage: UNK
     Route: 065
  5. TYLENOL [Suspect]
     Active Substance: ACETAMINOPHEN
     Indication: Product used for unknown indication
     Dosage: UNK
     Route: 065
  6. SODIUM CHLORIDE [Concomitant]
     Active Substance: SODIUM CHLORIDE
     Dosage: UNK
  7. STERILE WATER [Concomitant]
     Active Substance: WATER
     Dosage: UNK
     Route: 065
  8. EPINEPHRINE [Concomitant]
     Active Substance: EPINEPHRINE
     Dosage: UNK
     Route: 065
  9. RUCONEST [Concomitant]
     Active Substance: HUMAN C1-ESTERASE INHIBITOR
     Dosage: UNK
     Route: 065
  10. LEVEMIR [Concomitant]
     Active Substance: INSULIN DETEMIR
     Dosage: UNK
     Route: 065
  11. GVOKE [Concomitant]
     Active Substance: GLUCAGON
     Dosage: UNK
  12. DOXYCYCLINE HYCLATE [Concomitant]
     Active Substance: DOXYCYCLINE HYCLATE
     Dosage: UNK
     Route: 065
  13. GABAPENTIN [Concomitant]
     Active Substance: GABAPENTIN
     Dosage: UNK
     Route: 065
  14. TRANEXAMIC ACID [Concomitant]
     Active Substance: TRANEXAMIC ACID
     Dosage: UNK
     Route: 065
  15. FIASP [Concomitant]
     Active Substance: INSULIN ASPART
     Dosage: UNK
  16. ROSUVASTATIN CALCIUM [Concomitant]
     Active Substance: ROSUVASTATIN CALCIUM
     Dosage: UNK
  17. FAMOTIDINE [Concomitant]
     Active Substance: FAMOTIDINE
     Dosage: UNK
     Route: 065
  18. ICATIBANT [Concomitant]
     Active Substance: ICATIBANT ACETATE
     Dosage: UNK
     Route: 065
  19. TRULICITY [Concomitant]
     Active Substance: DULAGLUTIDE
     Dosage: UNK
  20. DIPHENHYDRAMINE HYDROCHLORIDE [Concomitant]
     Active Substance: DIPHENHYDRAMINE HYDROCHLORIDE
  21. ZYRTEC [Concomitant]
     Active Substance: CETIRIZINE HYDROCHLORIDE
     Dosage: UNK
     Route: 065
  22. CLINDAMYCIN AND BENZOYL PEROXIDE [Concomitant]
     Active Substance: BENZOYL PEROXIDE\CLINDAMYCIN PHOSPHATE
     Dosage: UNK
  23. TRESIBA [Concomitant]
     Active Substance: INSULIN DEGLUDEC
     Dosage: UNK
  24. TRESIBA [Concomitant]
     Active Substance: INSULIN DEGLUDEC
     Dosage: UNK
     Route: 065
  25. DULOXETINE HYDROCHLORIDE [Concomitant]
     Active Substance: DULOXETINE HYDROCHLORIDE
  26. ORPHENADRINE CITRATE [Concomitant]
     Active Substance: ORPHENADRINE CITRATE
     Dosage: UNK
     Route: 065
  27. CETIRIZINE HCL [Concomitant]
     Active Substance: CETIRIZINE HYDROCHLORIDE
     Dosage: UNK
     Route: 065

REACTIONS (10)
  - Sialoadenitis [Unknown]
  - Blindness [Unknown]
  - Suicidal ideation [Unknown]
  - Hereditary angioedema [Not Recovered/Not Resolved]
  - Visual impairment [Unknown]
  - Weight decreased [Unknown]
  - Pain [Unknown]
  - Product availability issue [Unknown]
  - Overdose [Unknown]
  - Inappropriate schedule of product administration [Unknown]
